FAERS Safety Report 18780267 (Version 3)
Quarter: 2021Q1

REPORT INFORMATION
  Report Type: Spontaneous
  Country: DE (occurrence: DE)
  Receive Date: 20210125
  Receipt Date: 20210216
  Transmission Date: 20210419
  Serious: Yes (Hospitalization, Other)
  Sender: FDA-Public Use
  Company Number: DE-ALIMERA SCIENCES LIMITED-DE-A16013-21-000004

PATIENT

DRUGS (2)
  1. ILUVIEN [Suspect]
     Active Substance: FLUOCINOLONE ACETONIDE
     Indication: IRIDOCYCLITIS
     Dosage: 0.25 MICROGRAM, QD ? RIGHT EYE
     Route: 031
     Dates: start: 20180208, end: 20200107
  2. ILUVIEN [Suspect]
     Active Substance: FLUOCINOLONE ACETONIDE
     Dosage: 0.25 MICROGRAM, QD ? RIGHT EYE
     Route: 031
     Dates: start: 20191030

REACTIONS (10)
  - Vitrectomy [Recovered/Resolved]
  - Off label use [Unknown]
  - Corneal oedema [Recovered/Resolved]
  - Visual acuity reduced [Unknown]
  - Intraocular lens implant [Recovered/Resolved]
  - Hypotony of eye [Recovered/Resolved]
  - Lens extraction [Recovered/Resolved]
  - Medical device removal [Recovered/Resolved]
  - Lens dislocation [Recovered/Resolved]
  - Device dislocation [Recovered/Resolved]

NARRATIVE: CASE EVENT DATE: 20180208
